FAERS Safety Report 10173161 (Version 2)
Quarter: 2014Q2

REPORT INFORMATION
  Report Type: Spontaneous
  Country: US (occurrence: US)
  Receive Date: 20140515
  Receipt Date: 20140520
  Transmission Date: 20141212
  Serious: Yes (Hospitalization, Other)
  Sender: FDA-Public Use
  Company Number: US-PAR PHARMACEUTICAL, INC-2014SCPR009058

PATIENT
  Sex: 0

DRUGS (13)
  1. LEVETIRACETAM [Suspect]
     Indication: STATUS EPILEPTICUS
     Dosage: UNK, UNKNOWN
     Route: 065
  2. KETALAR [Suspect]
     Indication: STATUS EPILEPTICUS
     Dosage: UNK, UNKNOWN
     Route: 065
  3. VALPROIC ACID [Suspect]
     Indication: STATUS EPILEPTICUS
     Dosage: 1500 MG, EVERY 12 HOURS
     Route: 065
  4. VALPROIC ACID [Suspect]
     Dosage: 3000 MG, SINGLE
     Route: 040
  5. VALPROIC ACID [Suspect]
     Dosage: 3000 MG, TID
     Route: 065
  6. VALPROIC ACID [Suspect]
     Dosage: 2000 MG, EVERY 12 HOURS
     Route: 065
  7. LACOSAMIDE [Suspect]
     Indication: STATUS EPILEPTICUS
     Dosage: UNK, UNKNOWN
     Route: 065
  8. VIGABATRIN [Suspect]
     Indication: STATUS EPILEPTICUS
     Dosage: UNK, UNKNOWN
     Route: 065
  9. PHENOBARBITAL [Concomitant]
     Indication: STATUS EPILEPTICUS
     Dosage: UNK, UNKNOWN
     Route: 065
  10. PROPOFOL [Concomitant]
     Indication: STATUS EPILEPTICUS
     Dosage: UNK, UNKNOWN
  11. CLOBAZAM [Concomitant]
     Indication: STATUS EPILEPTICUS
     Dosage: UNK, UNKNOWN
     Route: 065
  12. PREGABALIN [Concomitant]
     Indication: STATUS EPILEPTICUS
     Dosage: UNK, UNKNOWN
     Route: 065
  13. TOPIRAMATE [Concomitant]
     Indication: STATUS EPILEPTICUS
     Dosage: UNK, UNKNOWN
     Route: 065

REACTIONS (3)
  - Acidosis [Unknown]
  - Hyperkalaemia [Unknown]
  - Urine output decreased [Unknown]
